FAERS Safety Report 12656604 (Version 1)
Quarter: 2016Q3

REPORT INFORMATION
  Report Type: Spontaneous
  Country: US (occurrence: US)
  Receive Date: 20160816
  Receipt Date: 20160816
  Transmission Date: 20161109
  Serious: No
  Sender: FDA-Public Use
  Company Number: US-ENDO PHARMACEUTICALS INC.-2016-004502

PATIENT
  Age: 45 Year
  Sex: Female
  Weight: 63.56 kg

DRUGS (4)
  1. SUMAVEL DOSEPRO [Suspect]
     Active Substance: SUMATRIPTAN SUCCINATE
     Indication: CLUSTER HEADACHE
  2. BOTOX [Concomitant]
     Active Substance: ONABOTULINUMTOXINA
     Indication: MIGRAINE
  3. SUMAVEL DOSEPRO [Suspect]
     Active Substance: SUMATRIPTAN SUCCINATE
     Indication: MIGRAINE
     Dosage: INJECT 6MG INTO THIGH ONCE A MONTH, MAYBE 4 INJECTIONS OVER 3 TO 6 DAYS
     Route: 065
     Dates: start: 201402
  4. FIORICET [Concomitant]
     Active Substance: ACETAMINOPHEN\BUTALBITAL\CAFFEINE
     Indication: MIGRAINE

REACTIONS (5)
  - Injection site bruising [Not Recovered/Not Resolved]
  - Accidental exposure to product [Unknown]
  - Drug effect decreased [Unknown]
  - Device malfunction [Unknown]
  - Underdose [Unknown]

NARRATIVE: CASE EVENT DATE: 20160710
